FAERS Safety Report 8449115-1 (Version None)
Quarter: 2012Q2

REPORT INFORMATION
  Report Type: 
  Country: None (occurrence: None)
  Receive Date: 20120619
  Receipt Date: 20120611
  Transmission Date: 20120825
  Serious: No
  Sender: FDA-Public Use
  Company Number: CA-JNJFOC-20120606195

PATIENT
  Sex: Female
  Weight: 75.4 kg

DRUGS (14)
  1. DOMPERIDONE [Concomitant]
     Route: 065
  2. RISPERIDONE [Concomitant]
     Route: 065
  3. LEVOTHYROXINE SODIUM [Concomitant]
     Route: 065
  4. MICRO-K [Concomitant]
     Route: 065
  5. RANITIDINE [Concomitant]
     Route: 065
  6. ALENDRONATE SODIUM [Concomitant]
     Route: 065
  7. CITALOPRAM [Concomitant]
     Route: 065
  8. AZATHIOPRINE [Concomitant]
     Route: 065
  9. REMICADE [Suspect]
     Indication: CROHN'S DISEASE
     Dosage: HAD 40 INFUSIONS
     Route: 042
  10. TRAZODONE HCL [Concomitant]
     Route: 065
  11. CIPROFLOXACIN HCL [Concomitant]
     Route: 065
  12. ATIVAN [Concomitant]
     Route: 065
  13. EFFEXOR [Concomitant]
     Route: 065
  14. MESALAMINE [Concomitant]
     Route: 065

REACTIONS (1)
  - HERPES ZOSTER [None]
